FAERS Safety Report 19840737 (Version 2)
Quarter: 2021Q4

REPORT INFORMATION
  Report Type: Spontaneous
  Country: CA (occurrence: CA)
  Receive Date: 20210916
  Receipt Date: 20211004
  Transmission Date: 20220303
  Serious: Yes (Other)
  Sender: FDA-Public Use
  Company Number: CA-MLMSERVICE-20210830-3076874-1

PATIENT
  Age: 37 Year
  Sex: Male
  Weight: 106 kg

DRUGS (8)
  1. DEXAMETHASONE [Suspect]
     Active Substance: DEXAMETHASONE
     Indication: Craniopharyngioma
     Route: 065
  2. VEMURAFENIB [Concomitant]
     Active Substance: VEMURAFENIB
     Indication: Craniopharyngioma
     Dosage: INTERMITTENT DOSE REDUCTION AFTER 3.7 MONTH 1.5 MONTH INTERRUPTION AFTER 14.7 M; TOTAL: 4 0M
  3. VEMURAFENIB [Concomitant]
     Active Substance: VEMURAFENIB
     Dosage: THE DOSE OF VEMURAFENIB WAS REDUCED BY 50%
  4. VEMURAFENIB [Concomitant]
     Active Substance: VEMURAFENIB
     Dosage: THE DOSE OF VEMURAFENIB WAS INCREASED TO 75%
  5. VEMURAFENIB [Concomitant]
     Active Substance: VEMURAFENIB
     Dosage: FULL DOSE VEMURAFENIB
  6. TESTOSTERONE [Concomitant]
     Active Substance: TESTOSTERONE
     Indication: Product used for unknown indication
     Route: 061
  7. LEVOTHYROXINE [Concomitant]
     Active Substance: LEVOTHYROXINE
     Indication: Product used for unknown indication
  8. HYDROCORTISONE [Concomitant]
     Active Substance: HYDROCORTISONE
     Indication: Product used for unknown indication

REACTIONS (4)
  - Steroid diabetes [Unknown]
  - Diabetes insipidus [Unknown]
  - Condition aggravated [Unknown]
  - Weight increased [Unknown]
